FAERS Safety Report 4280458-1 (Version None)
Quarter: 2004Q1

REPORT INFORMATION
  Report Type: 
  Country: None (occurrence: None)
  Receive Date: 20040128
  Receipt Date: 20040128
  Transmission Date: 20041129
  Serious: No
  Sender: FDA-Public Use
  Company Number: None

PATIENT
  Sex: Female

DRUGS (2)
  1. IMITREX [Suspect]
     Indication: MIGRAINE
     Dosage: 100 MG ONCE
     Dates: start: 20040120
  2. TRIVORA-21 [Concomitant]

REACTIONS (3)
  - DYSTONIA [None]
  - MUSCLE TIGHTNESS [None]
  - TONIC CONVULSION [None]
